FAERS Safety Report 8492240-X (Version None)
Quarter: 2012Q3

REPORT INFORMATION
  Report Type: 
  Country: None (occurrence: None)
  Receive Date: 20120706
  Receipt Date: 20120703
  Transmission Date: 20120928
  Serious: Yes (Death, Life-Threatening, Other)
  Sender: FDA-Public Use
  Company Number: DE-B.I. PHARMACEUTICALS,INC./RIDGEFIELD-2012-DE-01434DE

PATIENT
  Sex: Female
  Weight: 80 kg

DRUGS (7)
  1. FUROSEMIDE [Concomitant]
  2. INSULIN [Concomitant]
  3. SIMVASTATIN [Concomitant]
  4. CAPTOHEXAL [Concomitant]
     Indication: HYPERTENSION
     Dosage: 2 ANZ
     Route: 048
     Dates: start: 20120525
  5. METOPROLOL TARTRATE [Concomitant]
     Indication: HYPERTENSION
     Dosage: 2 ANZ
     Route: 048
     Dates: start: 20120525
  6. METFORMIN HCL [Concomitant]
  7. PRADAXA [Suspect]
     Indication: ATRIAL FIBRILLATION
     Dosage: 220 MG
     Route: 048
     Dates: start: 20120601

REACTIONS (7)
  - MULTI-ORGAN FAILURE [None]
  - HAEMATEMESIS [None]
  - BRADYARRHYTHMIA [None]
  - INTESTINAL HAEMORRHAGE [None]
  - HYPOTENSION [None]
  - RENAL FAILURE ACUTE [None]
  - GASTRIC ULCER PERFORATION [None]
